FAERS Safety Report 12261785 (Version 1)
Quarter: 2016Q2

REPORT INFORMATION
  Report Type: Report from Study
  Country: US (occurrence: US)
  Receive Date: 20160413
  Receipt Date: 20160413
  Transmission Date: 20160815
  Serious: Yes (Hospitalization)
  Sender: FDA-Public Use
  Company Number: US-009507513-1604USA001328

PATIENT
  Age: 59 Year
  Sex: Male
  Weight: 99.79 kg

DRUGS (9)
  1. HYDROCHLOROTHIAZIDE. [Suspect]
     Active Substance: HYDROCHLOROTHIAZIDE
     Dosage: UNK
     Route: 048
     Dates: end: 20151109
  2. NAPROXEN SODIUM. [Suspect]
     Active Substance: NAPROXEN SODIUM
     Indication: RENAL CELL CARCINOMA
     Dosage: UNK
     Route: 048
     Dates: end: 20151109
  3. BACTRIM [Suspect]
     Active Substance: SULFAMETHOXAZOLE\TRIMETHOPRIM
     Indication: RENAL CELL CARCINOMA
  4. BACTRIM [Suspect]
     Active Substance: SULFAMETHOXAZOLE\TRIMETHOPRIM
     Indication: CELLULITIS
     Dosage: UNK
     Route: 048
     Dates: end: 20151109
  5. AMG 386 [Suspect]
     Active Substance: TREBANANIB
     Indication: CELLULITIS
     Dosage: 15 MG/KG, ON DAYS 1,8, 15,22 AND 36.
     Route: 042
     Dates: start: 20150921, end: 20151026
  6. PAZOPANIB [Suspect]
     Active Substance: PAZOPANIB
     Indication: RENAL CELL CARCINOMA
  7. COZAAR [Suspect]
     Active Substance: LOSARTAN POTASSIUM
     Indication: RENAL CELL CARCINOMA
     Dosage: UNK
     Route: 048
     Dates: end: 20151109
  8. AMG 386 [Suspect]
     Active Substance: TREBANANIB
     Indication: RENAL CELL CARCINOMA
  9. PAZOPANIB [Suspect]
     Active Substance: PAZOPANIB
     Indication: CELLULITIS
     Dosage: 800 MG, QD
     Route: 048
     Dates: start: 20141201, end: 20150211

REACTIONS (3)
  - Acute kidney injury [Recovered/Resolved with Sequelae]
  - Skin infection [Recovered/Resolved with Sequelae]
  - Hypotension [Recovered/Resolved with Sequelae]

NARRATIVE: CASE EVENT DATE: 20151109
